FAERS Safety Report 8583150-8 (Version None)
Quarter: 2012Q3

REPORT INFORMATION
  Report Type: 
  Country: None (occurrence: None)
  Receive Date: 20120809
  Receipt Date: 20100430
  Transmission Date: 20120928
  Serious: Yes (Death)
  Sender: FDA-Public Use
  Company Number: PHHY2010FR094327

PATIENT
  Age: 37 Year
  Sex: Female

DRUGS (8)
  1. TACROLIMUS [Concomitant]
     Indication: IMMUNOSUPPRESSION
     Dosage: 12 TO 13.5 MG/ML
  2. MYCOPHENOLATE MOFETIL [Concomitant]
     Dosage: 750 MG PER DAY
  3. TERBINAFINE HCL [Suspect]
     Indication: ANTIFUNGAL TREATMENT
     Dosage: 250 MG,
  4. CASPOFUNGIN ACETATE [Suspect]
     Dosage: 150 MG/KG, WEIGHT/DAY
  5. VORICONAZOLE [Suspect]
     Dosage: 250 MG, BID
     Route: 048
  6. CASPOFUNGIN ACETATE [Suspect]
     Dosage: 2 IU/ML,
  7. CASPOFUNGIN ACETATE [Suspect]
     Dosage: 70 MG/KG, BODY WEIGHT/DAY
  8. PREDNISONE TAB [Concomitant]
     Dosage: 37.5 MG PER DAY

REACTIONS (1)
  - CEREBRAL HAEMORRHAGE [None]
